FAERS Safety Report 13883041 (Version 1)
Quarter: 2017Q3

REPORT INFORMATION
  Report Type: Spontaneous
  Country: US (occurrence: US)
  Receive Date: 20170818
  Receipt Date: 20170818
  Transmission Date: 20171127
  Serious: Yes (Disabling)
  Sender: FDA-Public Use
  Company Number: US-009507513-1708USA000702

PATIENT
  Sex: Female

DRUGS (16)
  1. BELSOMRA [Suspect]
     Active Substance: SUVOREXANT
     Dosage: 2  PILLS (20 MG), AT BEDTIME
     Route: 048
     Dates: start: 20160620, end: 20161101
  2. ALPRAZOLAM. [Concomitant]
     Active Substance: ALPRAZOLAM
  3. QUETIAPINE FUMARATE. [Concomitant]
     Active Substance: QUETIAPINE FUMARATE
  4. ASCORBIC ACID. [Concomitant]
     Active Substance: ASCORBIC ACID
  5. OMEPRAZOLE. [Concomitant]
     Active Substance: OMEPRAZOLE
  6. PROPRANOLOL [Concomitant]
     Active Substance: PROPRANOLOL HYDROCHLORIDE
  7. ARIPIPRAZOLE. [Concomitant]
     Active Substance: ARIPIPRAZOLE
  8. DESLORATADINE. [Concomitant]
     Active Substance: DESLORATADINE
  9. FAMCICLOVIR. [Concomitant]
     Active Substance: FAMCICLOVIR
  10. BELSOMRA [Suspect]
     Active Substance: SUVOREXANT
     Indication: INSOMNIA
     Dosage: 10 MG, AT BEDTIME
     Route: 048
     Dates: start: 20160617
  11. ZOLOFT [Concomitant]
     Active Substance: SERTRALINE HYDROCHLORIDE
  12. DIPHENHYDRAMINE. [Concomitant]
     Active Substance: DIPHENHYDRAMINE
  13. VITAMIN D [Concomitant]
     Active Substance: CHOLECALCIFEROL
  14. ZOLPIDEM [Concomitant]
     Active Substance: ZOLPIDEM\ZOLPIDEM TARTRATE
  15. FLUTICASONE. [Concomitant]
     Active Substance: FLUTICASONE
  16. IBUPROFEN. [Concomitant]
     Active Substance: IBUPROFEN

REACTIONS (3)
  - Somnambulism [Not Recovered/Not Resolved]
  - Amnesia [Not Recovered/Not Resolved]
  - Middle insomnia [Not Recovered/Not Resolved]
